FAERS Safety Report 15017949 (Version 1)
Quarter: 2018Q2

REPORT INFORMATION
  Report Type: Spontaneous
  Country: US (occurrence: US)
  Receive Date: 20180615
  Receipt Date: 20180615
  Transmission Date: 20180711
  Serious: Yes (Other)
  Sender: FDA-Public Use
  Company Number: US-JUBILANT CADISTA PHARMACEUTICALS-2018JUB00221

PATIENT
  Age: 21 Year
  Sex: Male

DRUGS (7)
  1. PALIPERIDONE PALMITATE [Suspect]
     Active Substance: PALIPERIDONE PALMITATE
     Indication: ACUTE PSYCHOSIS
     Dosage: 234 MG, ONCE
     Route: 030
  2. RISPERIDONE. [Suspect]
     Active Substance: RISPERIDONE
     Dosage: 3 MG, 1X/DAY (IN THE EVENING)
     Route: 048
  3. PALIPERIDONE PALMITATE [Suspect]
     Active Substance: PALIPERIDONE PALMITATE
     Dosage: 156 MG, ONCE
     Route: 030
  4. RISPERIDONE. [Suspect]
     Active Substance: RISPERIDONE
     Dosage: 2 MG, 1X/DAY (IN THE MORNING)
     Route: 048
  5. BENZTROPINE. [Suspect]
     Active Substance: BENZTROPINE
     Indication: ACUTE PSYCHOSIS
     Dosage: 2 MG, 2X/DAY
     Route: 048
  6. RISPERIDONE. [Suspect]
     Active Substance: RISPERIDONE
     Indication: ACUTE PSYCHOSIS
     Dosage: 2 MG, 1X/DAY (IN THE MORNING)
     Route: 048
  7. RISPERIDONE. [Suspect]
     Active Substance: RISPERIDONE
     Dosage: 3 MG, 1X/DAY (IN THE EVENING)
     Route: 048

REACTIONS (2)
  - Drug interaction [Recovered/Resolved]
  - Sinus tachycardia [Recovered/Resolved]
